FAERS Safety Report 4626750-X (Version None)
Quarter: 2005Q1

REPORT INFORMATION
  Report Type: 
  Country: None (occurrence: None)
  Receive Date: 20050331
  Receipt Date: 20050322
  Transmission Date: 20050727
  Serious: Yes (Hospitalization)
  Sender: FDA-Public Use
  Company Number: 2005-126695-NL

PATIENT
  Age: 65 Year
  Sex: Female

DRUGS (4)
  1. MIRTAZAPINE [Suspect]
     Indication: DEPRESSION
     Dosage: 50 MG ORAL
     Route: 048
     Dates: start: 20050214, end: 20050220
  2. OLANZAPINE [Suspect]
     Dosage: 2.5 MG ORAL
     Route: 048
  3. PREDNISOLONE [Concomitant]
  4. TIMOLOL MALEATE [Concomitant]

REACTIONS (4)
  - CONFUSIONAL STATE [None]
  - HYPONATRAEMIA [None]
  - INAPPROPRIATE ANTIDIURETIC HORMONE SECRETION [None]
  - PSYCHOTIC DISORDER [None]
